FAERS Safety Report 9099552 (Version 3)
Quarter: 2013Q3

REPORT INFORMATION
  Report Type: Report from Study
  Country: DE (occurrence: DE)
  Receive Date: 20130214
  Receipt Date: 20130828
  Transmission Date: 20140515
  Serious: Yes (Death, Hospitalization, Other)
  Sender: FDA-Public Use
  Company Number: DE-BRISTOL-MYERS SQUIBB COMPANY-17353103

PATIENT
  Age: 75 Year
  Sex: Female

DRUGS (23)
  1. CISPLATIN [Suspect]
     Indication: METASTATIC GASTRIC CANCER
     Dosage: BATCH NUMBERS:12C30LA,12D25KA
     Route: 041
  2. 5-FLUOROURACIL [Suspect]
     Indication: METASTATIC GASTRIC CANCER
     Dosage: ALSO 7300MG?BATCH NUMBERS:M110727A,M110734A
     Route: 041
  3. PANTOZOL [Concomitant]
     Dates: start: 20120307, end: 20120719
  4. DILTIAZEM HCL [Concomitant]
     Indication: HYPERTENSION
     Dates: start: 20120307, end: 20120719
  5. INDAPAMID [Concomitant]
     Indication: HYPERTENSION
     Dates: start: 20120307, end: 20120719
  6. LEVOTHYROXINE SODIUM [Concomitant]
     Dates: start: 2012, end: 20120719
  7. INSULIN RAPID [Concomitant]
     Indication: DIABETES MELLITUS
     Dates: start: 2012, end: 20120719
  8. LANTUS [Concomitant]
     Indication: DIABETES MELLITUS
     Dates: start: 2012, end: 20120719
  9. TRAMAL [Concomitant]
     Dates: start: 20120307, end: 20120719
  10. MOVICOL [Concomitant]
     Dates: start: 20120307, end: 20120719
  11. IBUPROFEN [Concomitant]
     Indication: PAIN PROPHYLAXIS
     Dates: start: 20120420
  12. NOVALGIN [Concomitant]
     Indication: PAIN PROPHYLAXIS
     Dates: start: 20120510
  13. METOCLOPRAMIDE HCL [Concomitant]
     Indication: PROPHYLAXIS OF NAUSEA AND VOMITING
     Dates: start: 20120510
  14. VOMEX A [Concomitant]
     Indication: PROPHYLAXIS OF NAUSEA AND VOMITING
     Dates: start: 20120510
  15. ACETYLSALICYLIC ACID [Concomitant]
     Indication: PLATELET AGGREGATION INHIBITION
     Dates: start: 20120621
  16. CLEXANE [Concomitant]
     Indication: PROPHYLAXIS
     Dates: start: 20120710
  17. SULFADIAZINE [Concomitant]
     Indication: SKIN ULCER
     Dates: start: 20120712
  18. MORPHINE [Concomitant]
     Indication: PAIN PROPHYLAXIS
     Dates: start: 201207, end: 201207
  19. BENZODIAZEPINE [Concomitant]
     Indication: PAIN PROPHYLAXIS
     Dates: start: 201207, end: 201207
  20. PICOLAX [Concomitant]
     Dates: start: 20120712, end: 20120718
  21. METOCLOPRAMIDE [Concomitant]
     Indication: CONSTIPATION PROPHYLAXIS
     Dates: start: 20120712, end: 20120718
  22. POTASSIUM CHLORIDE [Concomitant]
     Dates: start: 20120713, end: 20120713
  23. MAGNESIUM [Concomitant]
     Dates: start: 20120713, end: 20120713

REACTIONS (8)
  - Malignant neoplasm progression [Fatal]
  - Sepsis [Fatal]
  - Pancytopenia [Recovered/Resolved]
  - Deep vein thrombosis [Unknown]
  - Pulmonary embolism [Unknown]
  - Confusional state [Recovered/Resolved]
  - Hyponatraemia [Recovered/Resolved]
  - Medical device complication [Recovered/Resolved]
